FAERS Safety Report 9162280 (Version 1)
Quarter: 2013Q1

REPORT INFORMATION
  Report Type: Spontaneous
  Country: FR (occurrence: FR)
  Receive Date: 20130314
  Receipt Date: 20130314
  Transmission Date: 20140127
  Serious: Yes (Other)
  Sender: FDA-Public Use
  Company Number: PHHY2013FR024477

PATIENT
  Sex: 0

DRUGS (1)
  1. IMATINIB [Suspect]
     Indication: SOFT TISSUE NEOPLASM
     Dosage: UNK UKN, UNK

REACTIONS (3)
  - Hypoglycaemia [Unknown]
  - Soft tissue neoplasm [Unknown]
  - Malignant neoplasm progression [Unknown]
